FAERS Safety Report 8037237-9 (Version None)
Quarter: 2012Q1

REPORT INFORMATION
  Report Type: 
  Country: None (occurrence: None)
  Receive Date: 20120109
  Receipt Date: 20111223
  Transmission Date: 20120608
  Serious: Yes (Death, Life-Threatening)
  Sender: FDA-Public Use
  Company Number: 1056097

PATIENT
  Age: 3 Year
  Sex: Male
  Weight: 15.9 kg

DRUGS (16)
  1. PHENYTOIN [Concomitant]
  2. THIOTEPA [Concomitant]
  3. METHOTREXATE [Suspect]
     Indication: GRAFT VERSUS HOST DISEASE
     Dosage: 6.8 MILLIGRAM(S), INTRAVENOUS (NOT OTHERWISE SPECIFIED)
     Route: 042
     Dates: start: 20110116, end: 20110119
  4. CYCLOPHOSPHAMIDE [Suspect]
     Indication: BONE MARROW FAILURE
     Dosage: 795 MG MILLIGRAM(S), INTRAVENOUS (NOT OTHERWISE SPECIFIED)
     Route: 042
     Dates: start: 20110107, end: 20110110
  5. CYCLOSPORINE [Concomitant]
  6. LANSOPRAZOLE [Concomitant]
  7. BUSULFAN [Suspect]
     Indication: BONE MARROW FAILURE
     Dosage: 16 MILLIGRAM(S), ORAL
     Route: 048
     Dates: start: 20110103, end: 20110106
  8. MESNA [Concomitant]
  9. ONDANSETRON [Concomitant]
  10. (ALEMTUZUMAB) [Concomitant]
  11. CIPROFLOXACIN [Concomitant]
  12. (PENTAMIDINE) [Concomitant]
  13. ACYCLOVIR [Concomitant]
  14. (ALLOPURINOL) [Concomitant]
  15. VITAMIN K TAB [Concomitant]
  16. ITRACONAZOLE [Concomitant]

REACTIONS (1)
  - VENOOCCLUSIVE LIVER DISEASE [None]
